FAERS Safety Report 14987898 (Version 2)
Quarter: 2018Q2

REPORT INFORMATION
  Report Type: Report from Study
  Country: RU (occurrence: RU)
  Receive Date: 20180608
  Receipt Date: 20180615
  Transmission Date: 20180711
  Serious: Yes (Hospitalization)
  Sender: FDA-Public Use
  Company Number: RU-ROCHE-2135011

PATIENT
  Age: 60 Year
  Sex: Female
  Weight: 87 kg

DRUGS (15)
  1. METHYLPREDNISOLONE. [Suspect]
     Active Substance: METHYLPREDNISOLONE
     Route: 042
     Dates: start: 20180505, end: 20180517
  2. FAMOTIDINE. [Concomitant]
     Active Substance: FAMOTIDINE
     Route: 065
     Dates: start: 20180417, end: 20180504
  3. OMEPRAZOLE. [Concomitant]
     Active Substance: OMEPRAZOLE
     Route: 065
     Dates: start: 20180505
  4. INDAPAMIDE. [Concomitant]
     Active Substance: INDAPAMIDE
     Indication: ESSENTIAL HYPERTENSION
     Route: 065
     Dates: start: 20180410
  5. METHYLPREDNISOLONE. [Suspect]
     Active Substance: METHYLPREDNISOLONE
     Indication: NEPHROPATHY
     Route: 042
     Dates: start: 20180426, end: 20180504
  6. KETOROL [Concomitant]
     Active Substance: KETOROLAC TROMETHAMINE
     Indication: PAIN IN EXTREMITY
     Route: 065
     Dates: start: 20180524
  7. COBIMETINIB. [Suspect]
     Active Substance: COBIMETINIB
     Indication: MALIGNANT MELANOMA
     Dosage: MOST RECENT DOSE (THREE 20 MG TABLETS) PRIOR TO THE ONSET OF THROMBOCYTOPENIA AND DIABETES MELLITUS
     Route: 048
     Dates: start: 20171219
  8. METHYLPREDNISOLONE. [Suspect]
     Active Substance: METHYLPREDNISOLONE
     Route: 048
     Dates: start: 20180524
  9. METHYLPREDNISOLONE. [Suspect]
     Active Substance: METHYLPREDNISOLONE
     Route: 042
     Dates: start: 20180518, end: 20180523
  10. AMLODIPINE [Concomitant]
     Active Substance: AMLODIPINE BESYLATE
     Indication: ESSENTIAL HYPERTENSION
     Route: 065
     Dates: start: 20180410
  11. VEMURAFENIB. [Suspect]
     Active Substance: VEMURAFENIB
     Indication: MALIGNANT MELANOMA
     Dosage: MOST RECENT DOSE (8 TABLETS) PRIOR TO THE ONSET OF THROMBOCYTOPENIA AND DIABETES MELLITUS INDUCED BY
     Route: 048
     Dates: start: 20171219
  12. PERINDOPRIL [Concomitant]
     Active Substance: PERINDOPRIL
     Indication: ESSENTIAL HYPERTENSION
     Route: 065
     Dates: start: 20180410
  13. PENTOXYFYLLINE [Concomitant]
     Indication: NEPHROPATHY
     Route: 065
     Dates: start: 20180426, end: 20180504
  14. CIPROFLOXACIN. [Concomitant]
     Active Substance: CIPROFLOXACIN
     Indication: NEPHROPATHY
     Route: 065
     Dates: start: 20180505, end: 20180511
  15. PLACEBO [Suspect]
     Active Substance: UNSPECIFIED INGREDIENT
     Indication: MALIGNANT MELANOMA
     Dosage: MOST RECENT DOSE ON 10/APR/2018
     Route: 042
     Dates: start: 20180116

REACTIONS (2)
  - Thrombocytopenia [Not Recovered/Not Resolved]
  - Diabetes mellitus [Not Recovered/Not Resolved]

NARRATIVE: CASE EVENT DATE: 20180529
